FAERS Safety Report 17282882 (Version 2)
Quarter: 2023Q2

REPORT INFORMATION
  Report Type: Report from Study
  Country: CN (occurrence: None)
  Receive Date: 20200117
  Receipt Date: 20230614
  Transmission Date: 20230721
  Serious: Yes (Hospitalization)
  Sender: FDA-Public Use
  Company Number: CN-ROCHE-2446690

PATIENT
  Age: 48 Year
  Sex: Female
  Weight: 60 kg

DRUGS (17)
  1. BEVACIZUMAB [Suspect]
     Active Substance: BEVACIZUMAB
     Indication: Ovarian epithelial cancer
     Dosage: DATE OF MOST RECENT DOSE OF BEVACIZUMAB PRIOR TO AE ONSET 9/OCT/2019
     Route: 042
     Dates: start: 20190911
  2. PACLITAXEL [Suspect]
     Active Substance: PACLITAXEL
     Indication: Ovarian epithelial cancer
     Dosage: DATE OF MOST RECENT DOSE (270 MG) OF PACLITAXEL PRIOR TO AE ONSET 9/OCT/2019
     Route: 042
     Dates: start: 20190821
  3. CARBOPLATIN [Suspect]
     Active Substance: CARBOPLATIN
     Indication: Ovarian epithelial cancer
     Dosage: DOSE: AREA UNDER THE CURVE (AUC) OF 6 MG/ML/MIN?DATE OF MOST RECENT DOSE (700 MG) OF CARBOPLATIN PRI
     Route: 042
     Dates: start: 20190821
  4. ORNIDAZOLE [Concomitant]
     Active Substance: ORNIDAZOLE
  5. DEXTROSE [Concomitant]
     Active Substance: DEXTROSE\DEXTROSE MONOHYDRATE
  6. POTASSIUM CHLORIDE [Concomitant]
     Active Substance: POTASSIUM CHLORIDE
  7. PAPAVERINE HYDROCHLORIDE [Concomitant]
     Active Substance: PAPAVERINE HYDROCHLORIDE
  8. LEUCOGEN (CHINA) [Concomitant]
     Indication: Platelet count decreased
     Dates: start: 20190923, end: 20191001
  9. DEXAMETHASONE ACETATE [Concomitant]
     Active Substance: DEXAMETHASONE ACETATE
     Dates: start: 20191008, end: 20191009
  10. DIPHENHYDRAMINE HYDROCHLORIDE [Concomitant]
     Active Substance: DIPHENHYDRAMINE HYDROCHLORIDE
     Dates: start: 20191009, end: 20191009
  11. CIMETIDINE [Concomitant]
     Active Substance: CIMETIDINE
     Dates: start: 20191009, end: 20191009
  12. DEXAMETHASONE SODIUM PHOSPHATE [Concomitant]
     Active Substance: DEXAMETHASONE SODIUM PHOSPHATE
     Dates: start: 20191009, end: 20191010
  13. RAMOSETRON HYDROCHLORIDE [Concomitant]
     Active Substance: RAMOSETRON HYDROCHLORIDE
     Dates: start: 20191009, end: 20191010
  14. POTASSIUM CHLORIDE [Concomitant]
     Active Substance: POTASSIUM CHLORIDE
     Dates: start: 20191009, end: 20191010
  15. ORNIDAZOLE [Concomitant]
     Active Substance: ORNIDAZOLE
     Dates: start: 20191016, end: 20191019
  16. POTASSIUM CHLORIDE [Concomitant]
     Active Substance: POTASSIUM CHLORIDE
     Dates: start: 20191016, end: 20191019
  17. CEFUROXIME SODIUM [Concomitant]
     Active Substance: CEFUROXIME SODIUM
     Dates: start: 20191016, end: 20191019

REACTIONS (1)
  - Mechanical ileus [Recovered/Resolved]

NARRATIVE: CASE EVENT DATE: 20191016
